FAERS Safety Report 8598114-8 (Version None)
Quarter: 2012Q3

REPORT INFORMATION
  Report Type: 
  Country: None (occurrence: None)
  Receive Date: 20120816
  Receipt Date: 20120809
  Transmission Date: 20120928
  Serious: Yes (Hospitalization)
  Sender: FDA-Public Use
  Company Number: US-PFIZER INC-2012195576

PATIENT
  Age: 39 Year
  Sex: Male

DRUGS (2)
  1. LEVOFLOXACIN [Concomitant]
     Indication: PNEUMONIA
     Dosage: 500 MG, DAILY
     Route: 042
  2. SULFAMETHOXAZOLE AND TRIMETHOPRIM [Suspect]
     Indication: PNEUMOCYSTIS JIROVECI PNEUMONIA
     Dosage: 2 DF DOUBLE STRENGH TABLETS, 4X/DAY
     Route: 048

REACTIONS (11)
  - HYPERHIDROSIS [None]
  - LIVER FUNCTION TEST ABNORMAL [None]
  - NAUSEA [None]
  - PYREXIA [None]
  - RHABDOMYOLYSIS [None]
  - PALLOR [None]
  - METABOLIC ACIDOSIS [None]
  - RENAL FAILURE ACUTE [None]
  - ASTHENIA [None]
  - TACHYPNOEA [None]
  - SINUS TACHYCARDIA [None]
